FAERS Safety Report 9238186 (Version 1)
Quarter: 2013Q2

REPORT INFORMATION
  Report Type: Report from Study
  Country: IN (occurrence: IN)
  Receive Date: 20130418
  Receipt Date: 20130418
  Transmission Date: 20140414
  Serious: Yes (Death, Other)
  Sender: FDA-Public Use
  Company Number: PHHY2012IN026202

PATIENT
  Age: 58 Year
  Sex: Male

DRUGS (3)
  1. GLIVEC [Suspect]
     Indication: CHRONIC MYELOID LEUKAEMIA
     Dosage: 400 MG, UNK
     Route: 048
  2. GLIVEC [Suspect]
     Dosage: 600 MG, UNK
     Route: 048
  3. GLIVEC [Suspect]
     Dosage: 800 UNK, UNK

REACTIONS (2)
  - Death [Fatal]
  - Chronic myeloid leukaemia [Unknown]
